FAERS Safety Report 10756175 (Version 2)
Quarter: 2015Q3

REPORT INFORMATION
  Report Type: Spontaneous
  Country: US (occurrence: US)
  Receive Date: 20150202
  Receipt Date: 20150709
  Transmission Date: 20151125
  Serious: No
  Sender: FDA-Public Use
  Company Number: US-PFIZER INC-2015013288

PATIENT
  Age: 65 Year
  Sex: Female
  Weight: 79.82 kg

DRUGS (12)
  1. VITAMIN D2 [Concomitant]
     Active Substance: ERGOCALCIFEROL
     Dosage: 1 CAPSULE (50000 UNITS) EVERY 2 WEEKS
     Route: 048
  2. LETAIRIS [Concomitant]
     Active Substance: AMBRISENTAN
     Dosage: 5 MG, DAILY
     Route: 048
  3. SYNTHROID [Concomitant]
     Active Substance: LEVOTHYROXINE SODIUM
     Dosage: 100 ?G, DAILY (TAKE 1 TABLET(100 MCG) BY ORAL ROUTE EVERY DAY)
     Route: 048
  4. ORENITRAM [Concomitant]
     Active Substance: TREPROSTINIL
     Dosage: UNK
     Dates: start: 201504
  5. LASIX [Concomitant]
     Active Substance: FUROSEMIDE
     Dosage: 40 MG, DAILY
     Route: 048
  6. MUCINEX [Concomitant]
     Active Substance: GUAIFENESIN
     Dosage: 1 DF, AS NEEDED (1 TABLET
  7. PREVACID [Concomitant]
     Active Substance: LANSOPRAZOLE
     Dosage: 30 MG, DAILY (TAKE 1 CAPSULE BY ORAL ROUTE EVERY DAY BEFORE A MEAL)
     Route: 048
  8. IRON [Concomitant]
     Active Substance: IRON
     Dosage: UNK
  9. XANAX [Concomitant]
     Active Substance: ALPRAZOLAM
     Dosage: 0.125 MG, 2X/DAY (TAKE 1/2 TABLET(0.125 MG) BY ORAL ROUTE 2 TIMES EVERY DAY)
     Route: 048
  10. REVATIO [Suspect]
     Active Substance: SILDENAFIL CITRATE
     Dosage: 80 MG, 3X/DAY (TAKE 4 TABLET OF (20 MG) BY ORAL ROUTE 3 TIMES  EVERY DAY)
     Route: 048
  11. JANTOVEN [Concomitant]
     Active Substance: WARFARIN SODIUM
     Dosage: 2.5 MG, DAILY
     Route: 048
     Dates: end: 20150526
  12. N-ACETYL-L-CYSTEINE [Concomitant]
     Dosage: 600 MG, 3X/DAY (600 MG THREE TIMES A DAY) (POWDER)

REACTIONS (2)
  - Nausea [Recovered/Resolved]
  - Vomiting [Recovered/Resolved]
